FAERS Safety Report 6667583-2 (Version None)
Quarter: 2010Q2

REPORT INFORMATION
  Report Type: 
  Country: None (occurrence: None)
  Receive Date: 20100405
  Receipt Date: 20100330
  Transmission Date: 20101027
  Serious: Yes (Hospitalization, Disabling, Other)
  Sender: FDA-Public Use
  Company Number: US-MERCK-0709USA01023

PATIENT
  Age: 42 Year
  Sex: Female

DRUGS (8)
  1. FOSAMAX [Suspect]
     Indication: OSTEOPOROSIS
     Route: 048
     Dates: start: 20030401, end: 20040501
  2. FOSAMAX [Suspect]
     Route: 048
     Dates: start: 20040501, end: 20060201
  3. TAMOXIFEN CITRATE [Concomitant]
     Route: 065
     Dates: start: 20041001, end: 20060101
  4. ZOLADEX [Concomitant]
     Route: 065
     Dates: start: 20031201, end: 20050201
  5. EFFEXOR [Concomitant]
     Route: 065
     Dates: start: 20031201
  6. EFFEXOR [Concomitant]
     Route: 065
     Dates: start: 20051101
  7. HORMONES (UNSPECIFIED) [Concomitant]
     Route: 065
     Dates: start: 20031001
  8. ANTINEOPLASTIC (UNSPECIFIED) [Concomitant]
     Route: 065
     Dates: start: 20030602, end: 20030915

REACTIONS (11)
  - ANXIETY [None]
  - BLADDER REPAIR [None]
  - CONFUSIONAL STATE [None]
  - DENTAL CARIES [None]
  - DEPRESSION [None]
  - FALL [None]
  - MUSCULOSKELETAL CHEST PAIN [None]
  - OOPHORECTOMY [None]
  - ORAL INFECTION [None]
  - OSTEONECROSIS [None]
  - UTERINE PROLAPSE [None]
